FAERS Safety Report 13259135 (Version 1)
Quarter: 2017Q1

REPORT INFORMATION
  Report Type: Spontaneous
  Country: US (occurrence: US)
  Receive Date: 20170221
  Receipt Date: 20170221
  Transmission Date: 20170428
  Serious: Yes (Other)
  Sender: FDA-Public Use
  Company Number: None

PATIENT
  Age: 60 Year
  Sex: Female
  Weight: 71.28 kg

DRUGS (3)
  1. CARVEDILOL 6.25MG AUROBINDO PHARM [Suspect]
     Active Substance: CARVEDILOL
  2. ISOSORBIDE MN 30MG [Suspect]
     Active Substance: ISOSORBIDE MONONITRATE
  3. RANEXA [Suspect]
     Active Substance: RANOLAZINE

REACTIONS (9)
  - Fatigue [None]
  - Somnolence [None]
  - Muscle spasms [None]
  - Dizziness [None]
  - Headache [None]
  - Constipation [None]
  - Peripheral swelling [None]
  - Joint swelling [None]
  - Weight increased [None]

NARRATIVE: CASE EVENT DATE: 20161208
